FAERS Safety Report 9108610 (Version 2)
Quarter: 2013Q2

REPORT INFORMATION
  Report Type: Spontaneous
  Country: US (occurrence: US)
  Receive Date: 20130222
  Receipt Date: 20130410
  Transmission Date: 20140414
  Serious: Yes (Death, Hospitalization)
  Sender: FDA-Public Use
  Company Number: US-B.I. PHARMACEUTICALS,INC./RIDGEFIELD-2013-BI-04076BP

PATIENT
  Age: 82 Year
  Sex: Male
  Weight: 77.11 kg

DRUGS (14)
  1. PRADAXA [Suspect]
     Indication: CEREBROVASCULAR ACCIDENT PROPHYLAXIS
     Dosage: 300 MG
     Route: 048
     Dates: end: 20130209
  2. PRADAXA [Suspect]
     Indication: ATRIAL FIBRILLATION
  3. SPIRIVA [Concomitant]
     Dosage: 18 MCG
     Route: 055
  4. SYMBICORT [Concomitant]
  5. XOPENEX [Concomitant]
  6. CARVEDILOL [Concomitant]
     Dosage: 37.5 MG
  7. REMERON [Concomitant]
     Dosage: 15 MG
  8. FENTANYL [Concomitant]
  9. MELOXICAM [Concomitant]
     Dosage: 7.5 MG
  10. DOXYCYCLINE [Concomitant]
     Dosage: 50 MG
  11. GABAPENTIN [Concomitant]
     Dosage: 1800 MG
  12. CYCLOGYL [Concomitant]
  13. ERYTHROMYCIN [Concomitant]
  14. EYE LUBRICATION [Concomitant]

REACTIONS (7)
  - Death [Fatal]
  - Asthenia [Not Recovered/Not Resolved]
  - Renal failure [Not Recovered/Not Resolved]
  - Delirium [Not Recovered/Not Resolved]
  - Infusion site haemorrhage [Not Recovered/Not Resolved]
  - Haemorrhage [Not Recovered/Not Resolved]
  - Failure to thrive [Unknown]
